FAERS Safety Report 4633435-2 (Version None)
Quarter: 2005Q2

REPORT INFORMATION
  Report Type: 
  Country: None (occurrence: None)
  Receive Date: 20050408
  Receipt Date: 20030717
  Transmission Date: 20051028
  Serious: No
  Sender: FDA-Public Use
  Company Number: 6023

PATIENT
  Age: 76 Year
  Sex: Male

DRUGS (1)
  1. AREDIA [Suspect]
     Indication: HYPERCALCAEMIA
     Dosage: 60 MG OTH IV
     Route: 042

REACTIONS (2)
  - HAEMODIALYSIS [None]
  - RENAL TUBULAR NECROSIS [None]
